FAERS Safety Report 8969388 (Version 1)
Quarter: 2012Q4

REPORT INFORMATION
  Report Type: 
  Country: GB (occurrence: GB)
  Receive Date: 20121217
  Receipt Date: 20121217
  Transmission Date: 20130627
  Serious: Yes (Other)
  Sender: FDA-Public Use
  Company Number: PHHY2012GB114442

PATIENT
  Age: 48 Year
  Sex: Female

DRUGS (2)
  1. SIMVASTATIN [Suspect]
     Indication: HYPERCHOLESTEROLAEMIA
     Dosage: 20 mg, QD
     Route: 048
     Dates: start: 20121123, end: 20121129
  2. ENALAPRIL [Concomitant]
     Dosage: 5 mg, QD

REACTIONS (3)
  - Oropharyngeal pain [Unknown]
  - Dry throat [Unknown]
  - Rhinorrhoea [Unknown]
